FAERS Safety Report 5500939-X (Version None)
Quarter: 2007Q4

REPORT INFORMATION
  Report Type: 
  Country: None (occurrence: None)
  Receive Date: 20071029
  Receipt Date: 20071017
  Transmission Date: 20080405
  Serious: Yes (Other)
  Sender: FDA-Public Use
  Company Number: PHRM2007FR02432

PATIENT
  Sex: Male

DRUGS (1)
  1. RITALIN [Suspect]
     Dosage: 10 MG, QD
     Route: 048
     Dates: start: 20071012

REACTIONS (2)
  - ELECTROCARDIOGRAM QT PROLONGED [None]
  - SUPRAVENTRICULAR EXTRASYSTOLES [None]
